FAERS Safety Report 21615217 (Version 3)
Quarter: 2023Q2

REPORT INFORMATION
  Report Type: Report from Study
  Country: CA (occurrence: CA)
  Receive Date: 20221118
  Receipt Date: 20230602
  Transmission Date: 20230722
  Serious: Yes (Other)
  Sender: FDA-Public Use
  Company Number: CA-SAMSUNG BIOEPIS-SB-2022-29157

PATIENT
  Age: 57 Year
  Sex: Female

DRUGS (6)
  1. HADLIMA [Suspect]
     Active Substance: ADALIMUMAB-BWWD
     Indication: Hidradenitis
     Dosage: 40 MG/0.8ML;
     Route: 065
     Dates: start: 20210910
  2. HADLIMA [Suspect]
     Active Substance: ADALIMUMAB-BWWD
     Dosage: 40 MG/0.8ML;
     Route: 065
     Dates: start: 20211210
  3. HADLIMA [Suspect]
     Active Substance: ADALIMUMAB-BWWD
     Dosage: DOSE: UNKNOWN
     Route: 065
     Dates: start: 20230114
  4. DULOXETINE [Concomitant]
     Active Substance: DULOXETINE
     Indication: Product used for unknown indication
     Dosage: UNKNOWN
     Route: 065
  5. CODEINE [Concomitant]
     Active Substance: CODEINE
     Indication: Product used for unknown indication
     Dosage: UNKNOWN
     Route: 065
  6. CLONAZEPAM [Concomitant]
     Active Substance: CLONAZEPAM
     Indication: Product used for unknown indication
     Dosage: UNKNOWN
     Route: 065

REACTIONS (7)
  - Pneumonia [Unknown]
  - Respiratory syncytial virus infection [Unknown]
  - Dyspnoea [Unknown]
  - Nasal congestion [Unknown]
  - Asthenia [Unknown]
  - Gait disturbance [Unknown]
  - Fatigue [Not Recovered/Not Resolved]
